FAERS Safety Report 6564772-2 (Version None)
Quarter: 2010Q1

REPORT INFORMATION
  Report Type: 
  Country: None (occurrence: None)
  Receive Date: 20100201
  Receipt Date: 20100126
  Transmission Date: 20100710
  Serious: Yes (Hospitalization)
  Sender: FDA-Public Use
  Company Number: US-GILEAD-2010-0026694

PATIENT
  Sex: Male

DRUGS (8)
  1. LETAIRIS [Suspect]
     Indication: PULMONARY ARTERIAL HYPERTENSION
     Route: 048
     Dates: start: 20080222
  2. FUROSEMIDE [Concomitant]
  3. PREDNISONE [Concomitant]
  4. LANTUS [Concomitant]
  5. PREVACID [Concomitant]
  6. M.V.I. [Concomitant]
  7. MINOCYCLINE HCL [Concomitant]
  8. IRON [Concomitant]

REACTIONS (3)
  - BLOOD POTASSIUM INCREASED [None]
  - BLOOD SODIUM DECREASED [None]
  - FLUID RETENTION [None]
